FAERS Safety Report 20777469 (Version 2)
Quarter: 2022Q2

REPORT INFORMATION
  Report Type: Spontaneous
  Country: US (occurrence: None)
  Receive Date: 20220503
  Receipt Date: 20220509
  Transmission Date: 20220720
  Serious: No
  Sender: FDA-Public Use
  Company Number: 2022A167794

PATIENT
  Sex: Male

DRUGS (1)
  1. BUDESONIDE\FORMOTEROL\GLYCOPYRRONIUM [Suspect]
     Active Substance: BUDESONIDE\FORMOTEROL\GLYCOPYRRONIUM
     Indication: Chronic obstructive pulmonary disease
     Dosage: 160MCG/9MCG/4.8MCG
     Route: 055
     Dates: start: 202203

REACTIONS (3)
  - Throat irritation [Not Recovered/Not Resolved]
  - Candida infection [Not Recovered/Not Resolved]
  - Wrong technique in device usage process [Unknown]
